FAERS Safety Report 10956989 (Version 3)
Quarter: 2015Q4

REPORT INFORMATION
  Report Type: Spontaneous
  Country: US (occurrence: US)
  Receive Date: 20150326
  Receipt Date: 20151028
  Transmission Date: 20160304
  Serious: Yes (Death, Other)
  Sender: FDA-Public Use
  Company Number: US-ASTRAZENECA-2014SE45957

PATIENT
  Age: 24385 Day
  Sex: Female
  Weight: 76.6 kg

DRUGS (20)
  1. VICTOZA [Suspect]
     Active Substance: LIRAGLUTIDE
     Dosage: UNK
     Route: 065
     Dates: start: 20121030, end: 20130425
  2. VICTOZA [Suspect]
     Active Substance: LIRAGLUTIDE
     Dosage: 18MG/3ML AT BEDTIME
     Route: 058
     Dates: start: 20130609
  3. ZOFRAN [Concomitant]
     Active Substance: ONDANSETRON HYDROCHLORIDE
     Route: 065
  4. BYETTA [Suspect]
     Active Substance: EXENATIDE
     Route: 065
     Dates: start: 20081130, end: 20081230
  5. ATIVAN [Concomitant]
     Active Substance: LORAZEPAM
     Route: 065
  6. LORTAB [Concomitant]
     Active Substance: ACETAMINOPHEN\HYDROCODONE BITARTRATE
     Dosage: 7.5/500 EVERY 6 HOURS
     Route: 048
  7. BYETTA [Suspect]
     Active Substance: EXENATIDE
     Route: 065
     Dates: start: 20081119
  8. COUMADIN [Concomitant]
     Active Substance: WARFARIN SODIUM
     Route: 048
  9. LOVENOX [Concomitant]
     Active Substance: ENOXAPARIN SODIUM
     Route: 065
  10. FAMOTIDINE. [Concomitant]
     Active Substance: FAMOTIDINE
     Route: 065
  11. PROTONIX [Concomitant]
     Active Substance: PANTOPRAZOLE SODIUM
     Dates: start: 201307
  12. VICTOZA [Suspect]
     Active Substance: LIRAGLUTIDE
     Dosage: 18MG/3ML
     Route: 065
     Dates: start: 20121030
  13. QUESTRAN [Concomitant]
     Active Substance: CHOLESTYRAMINE
     Dosage: 4 GRAM POWDER BID
  14. CODEINE [Concomitant]
     Active Substance: CODEINE
     Route: 048
  15. REGLAN [Concomitant]
     Active Substance: METOCLOPRAMIDE HYDROCHLORIDE
     Dates: start: 201307
  16. POTASSIUM CHLORIDE. [Concomitant]
     Active Substance: POTASSIUM CHLORIDE
     Route: 048
  17. MORPHINE [Concomitant]
     Active Substance: MORPHINE
     Route: 065
  18. GLUCOPHAGE [Concomitant]
     Active Substance: METFORMIN HYDROCHLORIDE
     Route: 065
  19. LANTUS [Concomitant]
     Active Substance: INSULIN GLARGINE
     Dosage: 100 UNITS PER ML 20 UNITS AT NIGHT
     Route: 058
  20. NEURONTIN [Concomitant]
     Active Substance: GABAPENTIN
     Dosage: FOUR TIMES PER DAY
     Route: 048

REACTIONS (5)
  - Pancreatic carcinoma metastatic [Fatal]
  - Ascites [Unknown]
  - Metastases to peritoneum [Unknown]
  - Jaundice cholestatic [Unknown]
  - Metastases to liver [Unknown]

NARRATIVE: CASE EVENT DATE: 20130612
